FAERS Safety Report 10917195 (Version 1)
Quarter: 2015Q1

REPORT INFORMATION
  Report Type: Spontaneous
  Country: US (occurrence: None)
  Receive Date: 20150312
  Receipt Date: 20150312
  Transmission Date: 20150721
  Serious: Yes (Life-Threatening, Other)
  Sender: FDA-Public Use
  Company Number: None

PATIENT
  Age: 58 Year
  Sex: Female
  Weight: 77.11 kg

DRUGS (1)
  1. RESTASIS [Suspect]
     Active Substance: CYCLOSPORINE
     Indication: DRY EYE
     Dosage: ONE DROP/ TWICE DAILY/ INTO THE EYE
     Dates: start: 20150305, end: 20150307

REACTIONS (4)
  - Chest discomfort [None]
  - Back pain [None]
  - Musculoskeletal stiffness [None]
  - Blood pressure increased [None]

NARRATIVE: CASE EVENT DATE: 20150307
